FAERS Safety Report 9136895 (Version 1)
Quarter: 2013Q1

REPORT INFORMATION
  Report Type: Spontaneous
  Country: US (occurrence: US)
  Receive Date: 20130304
  Receipt Date: 20130304
  Transmission Date: 20140127
  Serious: No
  Sender: FDA-Public Use
  Company Number: US-ABBOTT-12P-163-0938971-00

PATIENT
  Age: 56 None
  Sex: Male
  Weight: 90.8 kg

DRUGS (5)
  1. ANDROGEL 1% [Suspect]
     Indication: BLOOD TESTOSTERONE DECREASED
     Dosage: ONE 5 GRAM PACKET DAILY.
     Route: 061
     Dates: start: 201204
  2. LISINOPRIL [Concomitant]
     Indication: HYPERTENSION
  3. ALLOPURINOL [Concomitant]
     Indication: GOUT
  4. DURAGESIC PATCH [Concomitant]
     Indication: BACK PAIN
  5. HYDROCODONE [Concomitant]
     Indication: MUSCULOSKELETAL PAIN

REACTIONS (3)
  - Pollakiuria [Not Recovered/Not Resolved]
  - Insomnia [Not Recovered/Not Resolved]
  - Insomnia [Not Recovered/Not Resolved]
